FAERS Safety Report 15264439 (Version 1)
Quarter: 2018Q4

REPORT INFORMATION
  Report Type: Spontaneous
  Country: US (occurrence: US)
  Receive Date: 20180810
  Receipt Date: 20180810
  Transmission Date: 20190204
  Serious: No
  Sender: FDA-Public Use
  Company Number: US-HIKMA PHARMACEUTICALS USA INC.-US-H14001-18-05210

PATIENT
  Age: 32 Year
  Sex: Female
  Weight: 86.26 kg

DRUGS (8)
  1. DURAMORPH [Suspect]
     Active Substance: MORPHINE SULFATE
     Indication: PAIN MANAGEMENT
     Route: 065
     Dates: start: 20180524
  2. KETAMINE [Suspect]
     Active Substance: KETAMINE
     Indication: SPINAL ANAESTHESIA
  3. DURAMORPH [Suspect]
     Active Substance: MORPHINE SULFATE
     Indication: SPINAL ANAESTHESIA
  4. VERSED [Suspect]
     Active Substance: MIDAZOLAM HYDROCHLORIDE
     Indication: PAIN MANAGEMENT
     Route: 065
     Dates: start: 20180524
  5. FENTANYL. [Suspect]
     Active Substance: FENTANYL
     Indication: PAIN MANAGEMENT
     Route: 065
     Dates: start: 20180524
  6. FENTANYL. [Suspect]
     Active Substance: FENTANYL
     Indication: SPINAL ANAESTHESIA
  7. VERSED [Suspect]
     Active Substance: MIDAZOLAM HYDROCHLORIDE
     Indication: SPINAL ANAESTHESIA
  8. KETAMINE [Suspect]
     Active Substance: KETAMINE
     Indication: PAIN MANAGEMENT
     Route: 065
     Dates: start: 20180524

REACTIONS (7)
  - Hypertension [Unknown]
  - Crying [Unknown]
  - Anaesthetic complication [Unknown]
  - Product administration error [Unknown]
  - Pain [Unknown]
  - Maternal exposure during delivery [Unknown]
  - Drug ineffective [Unknown]

NARRATIVE: CASE EVENT DATE: 20180524
